FAERS Safety Report 9772942 (Version 4)
Quarter: 2014Q1

REPORT INFORMATION
  Report Type: Report from Study
  Country: IT (occurrence: IT)
  Receive Date: 20131219
  Receipt Date: 20140228
  Transmission Date: 20141002
  Serious: Yes (Hospitalization)
  Sender: FDA-Public Use
  Company Number: IT-VERTEX PHARMACEUTICALS INC-2013-011812

PATIENT
  Age: 18 Year
  Sex: Male
  Weight: 60 kg

DRUGS (31)
  1. VX-809 FDC [Suspect]
     Indication: CYSTIC FIBROSIS
     Dosage: 400 MG, Q12H
     Route: 048
     Dates: start: 20131007, end: 20131215
  2. VX-809 FDC [Suspect]
     Dosage: 400 MG, Q12H
     Route: 048
     Dates: start: 20131220
  3. VX-770 FDC [Suspect]
     Indication: CYSTIC FIBROSIS
     Dosage: 250 MG, Q12H
     Route: 048
     Dates: start: 20131007, end: 20131215
  4. VX-770 FDC [Suspect]
     Dosage: 250 MG, Q12H
     Route: 048
     Dates: start: 20131220
  5. PANCRELIPASE [Concomitant]
     Indication: PANCREATIC INSUFFICIENCY
     Dosage: UNK
     Route: 048
     Dates: start: 1995
  6. VITAMIN A [Concomitant]
     Indication: VITAMIN SUPPLEMENTATION
     Dosage: UNK
     Route: 048
     Dates: start: 20120522
  7. VITAMIN D [Concomitant]
     Indication: VITAMIN SUPPLEMENTATION
     Dosage: UNK
     Route: 048
     Dates: start: 20120522
  8. VITAMIN E [Concomitant]
     Indication: VITAMIN SUPPLEMENTATION
     Dosage: UNK
     Route: 048
     Dates: start: 20120522
  9. VITAMIN K [Concomitant]
     Indication: VITAMIN SUPPLEMENTATION
     Dosage: UNK
     Route: 048
     Dates: start: 20120522
  10. VITAMIN B [Concomitant]
     Indication: VITAMIN SUPPLEMENTATION
     Dosage: UNK
     Route: 048
     Dates: start: 20120522
  11. VITAMIN C [Concomitant]
     Indication: VITAMIN SUPPLEMENTATION
     Dosage: UNK
     Route: 048
     Dates: start: 20120522
  12. ZN [Concomitant]
     Indication: VITAMIN SUPPLEMENTATION
     Dosage: UNK
     Route: 048
     Dates: start: 20120522
  13. PROBIOTICS NOS [Concomitant]
     Indication: PROBIOTIC THERAPY
     Dosage: UNK
     Route: 048
     Dates: start: 20101027
  14. ISOCOLAN [Concomitant]
     Dosage: UNK
     Route: 048
     Dates: start: 20131216, end: 20131216
  15. HYANEB [Concomitant]
     Indication: RESPIRATORY TRACT INFLAMMATION
     Dosage: UNK
     Route: 055
     Dates: start: 20100706
  16. SALBUTAMOLO [Concomitant]
     Indication: CYSTIC FIBROSIS LUNG
     Dosage: UNK
     Route: 055
     Dates: start: 20080309
  17. SALBUTAMOLO [Concomitant]
     Indication: COUGH
     Dosage: UNK, PRN
     Route: 055
     Dates: start: 20070423, end: 20131123
  18. SALBUTAMOLO [Concomitant]
     Dosage: UNK, PRN
     Route: 048
     Dates: start: 20120911
  19. SALBUTAMOLO [Concomitant]
     Dosage: UNK
     Route: 055
     Dates: start: 20131123, end: 20131215
  20. SALBUTAMOLO [Concomitant]
     Dosage: UNK
     Route: 055
     Dates: start: 20131218
  21. IBUPROFENE [Concomitant]
     Indication: INFLAMMATION
     Dosage: UNK, PRN
     Route: 048
     Dates: start: 20100202
  22. FLUOCINOLONE [Concomitant]
     Indication: RHINITIS
     Dosage: UNK, PRN
     Route: 061
     Dates: start: 20070423, end: 20131202
  23. NEOMYCIN [Concomitant]
     Indication: RHINITIS
     Dosage: UNK, PRN
     Route: 061
     Dates: start: 20070423, end: 20131202
  24. NACL [Concomitant]
     Indication: RHINORRHOEA
     Dosage: UNK, PRN
     Route: 061
     Dates: start: 20120522
  25. CEFALEXINA [Concomitant]
     Indication: ANTIBIOTIC THERAPY
     Dosage: UNK, PRN
     Route: 048
     Dates: start: 20120215, end: 20131202
  26. CEFALEXINA [Concomitant]
     Dosage: UNK
     Route: 048
     Dates: start: 20131202, end: 20131227
  27. FLUNISOLIDE [Concomitant]
     Indication: CYSTIC FIBROSIS LUNG
     Dosage: UNK, PRN
     Route: 055
     Dates: start: 20070423, end: 20131123
  28. FLUNISOLIDE [Concomitant]
     Dosage: UNK
     Route: 055
     Dates: start: 20131123, end: 20131215
  29. FLUNISOLIDE [Concomitant]
     Dosage: UNK
     Route: 055
     Dates: start: 20131218
  30. MACROGOL [Concomitant]
     Dosage: 10 G, TID
     Route: 048
     Dates: start: 20131215, end: 20131216
  31. MACROGOL [Concomitant]
     Dosage: UNK
     Route: 048
     Dates: start: 20131218, end: 20140126

REACTIONS (1)
  - Distal intestinal obstruction syndrome [Recovered/Resolved]
